FAERS Safety Report 5180988-4 (Version None)
Quarter: 2006Q4

REPORT INFORMATION
  Report Type: 
  Country: None (occurrence: None)
  Receive Date: 20061214
  Receipt Date: 20061214
  Transmission Date: 20070319
  Serious: Yes (Other)
  Sender: FDA-Public Use
  Company Number: None

PATIENT
  Sex: Male

DRUGS (2)
  1. SULAR [Suspect]
     Indication: HYPERTENSION
     Dosage: 20MG ONCE DAILY BY MOUTH
     Route: 048
     Dates: start: 20060901, end: 20061001
  2. . [Concomitant]

REACTIONS (3)
  - BLOOD PRESSURE INADEQUATELY CONTROLLED [None]
  - DIZZINESS [None]
  - HEART RATE DECREASED [None]
